FAERS Safety Report 5991026-5 (Version None)
Quarter: 2008Q4

REPORT INFORMATION
  Report Type: 
  Country: None (occurrence: None)
  Receive Date: 20081211
  Receipt Date: 20071120
  Transmission Date: 20090506
  Serious: No
  Sender: FDA-Public Use
  Company Number: US-AMGEN-KDL248865

PATIENT
  Sex: Female

DRUGS (3)
  1. ENBREL [Suspect]
     Indication: RHEUMATOID ARTHRITIS
     Route: 058
     Dates: start: 20070912, end: 20070925
  2. METHOTREXATE [Suspect]
     Dates: start: 20070606, end: 20070927
  3. NAPROXEN [Concomitant]
     Dates: start: 20040406

REACTIONS (5)
  - ARTHRALGIA [None]
  - FEELING ABNORMAL [None]
  - JOINT SWELLING [None]
  - LIVER FUNCTION TEST ABNORMAL [None]
  - MOUTH ULCERATION [None]
